FAERS Safety Report 6514894 (Version 6)
Quarter: 2014Q4

REPORT INFORMATION
  Report Type: Spontaneous
  Country: US (occurrence: US)
  Receive Date: 20071227
  Receipt Date: 20141118
  Transmission Date: 20150529
  Serious: Yes (Other)
  Sender: FDA-Public Use
  Company Number: US-BAYER-200716899NA

PATIENT
  Age: 21 Year
  Sex: Female
  Weight: 84 kg

DRUGS (1)
  1. MIRENA [Suspect]
     Active Substance: LEVONORGESTREL
     Indication: CONTRACEPTION
     Dosage: 20 MCG/24HR, CONT
     Route: 015
     Dates: start: 20070423, end: 20071114

REACTIONS (19)
  - Benign intracranial hypertension [Recovered/Resolved]
  - Intraocular pressure increased [Recovered/Resolved]
  - Pain in extremity [None]
  - Fear [None]
  - Pain [Recovered/Resolved]
  - Complication of pregnancy [None]
  - Visual impairment [None]
  - Ear discomfort [Recovered/Resolved]
  - Paraesthesia [Unknown]
  - Headache [Recovered/Resolved]
  - Injury [Recovered/Resolved]
  - Hypoaesthesia [None]
  - Papilloedema [None]
  - Meralgia paraesthetica [None]
  - Blindness [Recovered/Resolved]
  - Vision blurred [Recovered/Resolved]
  - Hypoaesthesia [Recovered/Resolved]
  - Emotional distress [None]
  - Anxiety [None]

NARRATIVE: CASE EVENT DATE: 20071114
